FAERS Safety Report 7545186-5 (Version None)
Quarter: 2011Q2

REPORT INFORMATION
  Report Type: 
  Country: None (occurrence: None)
  Receive Date: 20110614
  Receipt Date: 20110531
  Transmission Date: 20111010
  Serious: Yes (Hospitalization)
  Sender: FDA-Public Use
  Company Number: FR-ELI_LILLY_AND_COMPANY-FR201105008677

PATIENT
  Sex: Male

DRUGS (6)
  1. FLUTICASONE PROPIONATE [Concomitant]
     Indication: CHRONIC OBSTRUCTIVE PULMONARY DISEASE
     Dosage: UNK, UNKNOWN
     Route: 065
  2. EZETIMIBE [Concomitant]
     Indication: DYSLIPIDAEMIA
     Dosage: UNK UNK, QD
     Route: 048
     Dates: start: 20100201, end: 20101001
  3. UVEDOSE [Concomitant]
     Indication: OSTEOPOROSIS
     Dosage: 100000 IU, OTHER
     Route: 048
     Dates: start: 20101201
  4. NEXIUM [Concomitant]
     Dosage: 20 MG, QD
     Route: 048
  5. ATORVASTATIN [Concomitant]
     Indication: DYSLIPIDAEMIA
     Dosage: UNK, QD
     Route: 048
     Dates: start: 20081201, end: 20100201
  6. FORTEO [Suspect]
     Indication: OSTEOPOROSIS
     Dosage: 20 UG, UNKNOWN
     Route: 058
     Dates: start: 20090801, end: 20100601

REACTIONS (2)
  - BLOOD CREATINE PHOSPHOKINASE INCREASED [None]
  - MYALGIA [None]
